FAERS Safety Report 8438330-9 (Version None)
Quarter: 2012Q2

REPORT INFORMATION
  Report Type: 
  Country: None (occurrence: None)
  Receive Date: 20120614
  Receipt Date: 20120604
  Transmission Date: 20120825
  Serious: Yes (Other)
  Sender: FDA-Public Use
  Company Number: US-BAYER-2012-056335

PATIENT
  Age: 82 Year
  Sex: Female

DRUGS (1)
  1. ACETAMINOPHEN, ASPIRIN AND CAFFEINE [Suspect]
     Indication: HEADACHE
     Dosage: 4-6DF/DAILY
     Route: 048

REACTIONS (4)
  - RENAL FAILURE [None]
  - HEADACHE [None]
  - MYOCARDIAL INFARCTION [None]
  - REBOUND EFFECT [None]
